FAERS Safety Report 14590419 (Version 3)
Quarter: 2018Q2

REPORT INFORMATION
  Report Type: Spontaneous
  Country: JP (occurrence: JP)
  Receive Date: 20180302
  Receipt Date: 20180405
  Transmission Date: 20180711
  Serious: Yes (Hospitalization, Other)
  Sender: FDA-Public Use
  Company Number: JP-009507513-1801JPN000241J

PATIENT
  Age: 50 Year
  Sex: Male
  Weight: 74 kg

DRUGS (5)
  1. SODIUM VALPROATE [Concomitant]
     Active Substance: VALPROATE SODIUM
     Indication: BRAIN TUMOUR OPERATION
     Dosage: 200 MG, BID
     Route: 048
     Dates: start: 20171026
  2. LANSOPRAZOLE. [Concomitant]
     Active Substance: LANSOPRAZOLE
     Indication: GASTROOESOPHAGEAL REFLUX DISEASE
     Dosage: 15 MG, QD
     Route: 048
     Dates: start: 20171002
  3. MAGMITT [Concomitant]
     Active Substance: MAGNESIUM OXIDE
     Indication: CONSTIPATION
     Dosage: 660 MG, TID
     Route: 048
     Dates: start: 20171002
  4. KEYTRUDA [Suspect]
     Active Substance: PEMBROLIZUMAB
     Indication: LUNG ADENOCARCINOMA
     Dosage: 200 MG, Q3W
     Route: 041
     Dates: start: 20171010, end: 20171212
  5. FYCOMPA [Concomitant]
     Active Substance: PERAMPANEL
     Indication: NERVOUS SYSTEM DISORDER
     Dosage: 2 MG, QD
     Route: 048
     Dates: start: 20171128

REACTIONS (5)
  - Cholecystitis [Unknown]
  - Pain [Recovered/Resolved]
  - Pericardial effusion [Recovered/Resolved]
  - Hepatic function abnormal [Recovered/Resolved]
  - Oedema [Recovered/Resolved]

NARRATIVE: CASE EVENT DATE: 20171228
